FAERS Safety Report 7105908-4 (Version None)
Quarter: 2010Q4

REPORT INFORMATION
  Report Type: 
  Country: None (occurrence: None)
  Receive Date: 20101116
  Receipt Date: 20101108
  Transmission Date: 20110411
  Serious: Yes (Other)
  Sender: FDA-Public Use
  Company Number: B0667745A

PATIENT
  Sex: Female

DRUGS (3)
  1. PAXIL [Suspect]
     Indication: ANXIETY
     Dosage: 10MG PER DAY
     Route: 048
     Dates: start: 20061210, end: 20061215
  2. DEPROMEL [Concomitant]
     Indication: ANXIETY
     Dosage: 75MG PER DAY
     Route: 048
     Dates: start: 20061210
  3. LENDORMIN [Concomitant]
     Indication: INSOMNIA
     Dosage: .25MG PER DAY
     Route: 048

REACTIONS (3)
  - ACTIVATION SYNDROME [None]
  - ANXIETY [None]
  - INTENTIONAL SELF-INJURY [None]
